FAERS Safety Report 8131009-2 (Version None)
Quarter: 2012Q1

REPORT INFORMATION
  Report Type: 
  Country: None (occurrence: None)
  Receive Date: 20120208
  Receipt Date: 20120208
  Transmission Date: 20120608
  Serious: Yes (Life-Threatening)
  Sender: FDA-Public Use
  Company Number: None

PATIENT
  Age: 62 Year
  Sex: Female
  Weight: 97.8 kg

DRUGS (2)
  1. VANCOMYCIN [Suspect]
     Dosage: 1750 MG EVERY DAY IV
     Route: 042
     Dates: start: 20111104, end: 20111108
  2. CEFEPIME [Suspect]
     Dosage: 2 GM BID IV
     Route: 042
     Dates: start: 20111103, end: 20111108

REACTIONS (5)
  - DIALYSIS [None]
  - CARDIO-RESPIRATORY ARREST [None]
  - SEPSIS [None]
  - TUBULOINTERSTITIAL NEPHRITIS [None]
  - EOSINOPHILS URINE PRESENT [None]
